FAERS Safety Report 4889185-0 (Version None)
Quarter: 2006Q1

REPORT INFORMATION
  Report Type: 
  Country: None (occurrence: None)
  Receive Date: 20060124
  Receipt Date: 20060116
  Transmission Date: 20060701
  Serious: Yes (Other)
  Sender: FDA-Public Use
  Company Number: US-JNJFOC-20051201816

PATIENT
  Sex: Female
  Weight: 64.86 kg

DRUGS (9)
  1. REMICADE [Suspect]
     Dosage: TOTAL NUMBER OF INFUSIONS PATIENT RECEIVED:  12
     Route: 042
  2. REMICADE [Suspect]
     Indication: RHEUMATOID ARTHRITIS
     Dosage: TOTAL NUMBER OF INFUSIONS RECEIVED:  12
     Route: 042
  3. METHOTREXATE [Concomitant]
  4. PREMARIN [Concomitant]
  5. PROGESTERONE [Concomitant]
  6. ACIPHEX [Concomitant]
  7. IBUPROFEN [Concomitant]
  8. MIACALCIN [Concomitant]
     Indication: OSTEOPOROSIS
     Route: 045
  9. NEURONTIN [Concomitant]

REACTIONS (1)
  - LYMPHOMA [None]
